FAERS Safety Report 5375474-2 (Version None)
Quarter: 2007Q2

REPORT INFORMATION
  Report Type: 
  Country: None (occurrence: None)
  Receive Date: 20070629
  Receipt Date: 20070621
  Transmission Date: 20071010
  Serious: Yes (Other)
  Sender: FDA-Public Use
  Company Number: US-PFIZER INC-2007045922

PATIENT
  Sex: Male

DRUGS (3)
  1. LIPITOR [Suspect]
     Route: 048
  2. COREG [Concomitant]
  3. WARFARIN SODIUM [Concomitant]

REACTIONS (3)
  - MEMORY IMPAIRMENT [None]
  - THERMAL BURN [None]
  - VASCULAR BYPASS GRAFT [None]
